FAERS Safety Report 17805200 (Version 1)
Quarter: 2020Q2

REPORT INFORMATION
  Report Type: Spontaneous
  Country: US (occurrence: US)
  Receive Date: 20200520
  Receipt Date: 20200520
  Transmission Date: 20200714
  Serious: Yes (Hospitalization)
  Sender: FDA-Public Use
  Company Number: US-BIOGEN-2020BI00875304

PATIENT
  Sex: Male

DRUGS (2)
  1. SPINRAZA [Suspect]
     Active Substance: NUSINERSEN
     Indication: SPINAL MUSCULAR ATROPHY
     Dosage: 4 LOADING DOSES AT BASELINE (DAY 1, 15, 30, 60)
     Route: 065
  2. SPINRAZA [Suspect]
     Active Substance: NUSINERSEN
     Dosage: MAINTENANCE DOSES AFTER LOADING DOSES
     Route: 037

REACTIONS (5)
  - Insomnia [Unknown]
  - Cellulitis [Recovered/Resolved]
  - Fall [Recovered/Resolved]
  - Gait disturbance [Unknown]
  - Decreased activity [Unknown]
